FAERS Safety Report 7292249-8 (Version None)
Quarter: 2010Q4

REPORT INFORMATION
  Report Type: 
  Country: None (occurrence: None)
  Receive Date: 20101223
  Receipt Date: 20100915
  Transmission Date: 20110411
  Serious: Yes (Other)
  Sender: FDA-Public Use
  Company Number: 2010000037

PATIENT
  Age: 79 Year
  Sex: Male
  Weight: 79.8 kg

DRUGS (15)
  1. NITROLINGUAL [Suspect]
     Indication: ANGINA PECTORIS
     Dosage: 2 SPRAYS, AS NEEDED, SUBLINGUAL
     Route: 060
     Dates: start: 20100711, end: 20100711
  2. NITROLINGUAL [Suspect]
  3. LEVOTHYROXINE SODIUM [Concomitant]
  4. AMLODIPINE [Concomitant]
  5. TEGRETOL [Concomitant]
  6. HYDRALAZINE (HYDRALAZINE HYDROCHLORIDE) [Concomitant]
  7. DIOVAN [Concomitant]
  8. OMEPRAZOLE [Concomitant]
  9. LIPITOR [Concomitant]
  10. CLONAZEPAM [Concomitant]
  11. CARBAMAZEPINE [Concomitant]
  12. ACETAMINOPHEN [Concomitant]
  13. COATED ASPIRIN (ACETYLSALICYLIC ACID) [Concomitant]
  14. MULTIVITAMINS (ASCORBIC ACID, ERGOCALCIFEROL, FOLIC ACID, NICOTINAMIDE [Concomitant]
  15. STOOL SOFTENER (DOCUSATE SODIUM) [Concomitant]

REACTIONS (2)
  - DRUG INEFFECTIVE [None]
  - EXPIRED DRUG ADMINISTERED [None]
